FAERS Safety Report 19478417 (Version 1)
Quarter: 2021Q2

REPORT INFORMATION
  Report Type: Spontaneous
  Country: DE (occurrence: DE)
  Receive Date: 20210630
  Receipt Date: 20210630
  Transmission Date: 20210717
  Serious: Yes (Hospitalization, Other)
  Sender: FDA-Public Use
  Company Number: DE-GLAXOSMITHKLINE-DE2021140288

PATIENT
  Age: 69 Year
  Sex: Male
  Weight: 72 kg

DRUGS (6)
  1. AMOXICILLIN + CLAVULANIC ACID [Suspect]
     Active Substance: AMOXICILLIN\CLAVULANIC ACID
     Indication: PRODUCT USED FOR UNKNOWN INDICATION
     Dosage: UNK UNK, BID, (875 | 125 MG, 1?0?1?0, TABLETS)
     Route: 048
  2. CARBIDOPA AND LEVODOPA [Concomitant]
     Active Substance: CARBIDOPA\LEVODOPA
     Indication: PRODUCT USED FOR UNKNOWN INDICATION
     Dosage: UNK, (GEL OVER PUMP)
     Route: 033
  3. BUPROPION. [Suspect]
     Active Substance: BUPROPION
     Indication: PRODUCT USED FOR UNKNOWN INDICATION
     Dosage: 150 MG, QD, (150 MG, 1?0?0?0, SUSTAINED?RELEASE TABLETS)
     Route: 048
  4. OPICAPONE [Suspect]
     Active Substance: OPICAPONE
     Indication: PRODUCT USED FOR UNKNOWN INDICATION
     Dosage: 50 MG, QD, (50 MG, 0?0?1?0, CAPSULES)
     Route: 048
  5. ZOPICLON [Concomitant]
     Active Substance: ZOPICLONE
     Indication: PRODUCT USED FOR UNKNOWN INDICATION
     Dosage: 7.5 MG, (7.5 MG, 0?0?0?0.5, TABLETS)
     Route: 048
  6. TAMSULOSIN [Concomitant]
     Active Substance: TAMSULOSIN
     Indication: PRODUCT USED FOR UNKNOWN INDICATION
     Dosage: 0.4 MG, QD (0.4 MG, 0?0?1?0, SUSTAINED?RELEASE TABLETS)
     Route: 048

REACTIONS (8)
  - Memory impairment [Unknown]
  - Urinary retention [Unknown]
  - Balance disorder [Unknown]
  - Disorientation [Unknown]
  - Confusional state [Unknown]
  - Language disorder [Unknown]
  - Dysuria [Unknown]
  - General physical health deterioration [Unknown]
